FAERS Safety Report 20018724 (Version 2)
Quarter: 2025Q3

REPORT INFORMATION
  Report Type: Spontaneous
  Country: EU (occurrence: EU)
  Receive Date: 20211101
  Receipt Date: 20250916
  Transmission Date: 20251020
  Serious: Yes (Other)
  Sender: ROCHE
  Company Number: EU-PFIZER INC-2021344917

PATIENT
  Age: 72 Year

DRUGS (3)
  1. MYCOPHENOLATE MOFETIL [Suspect]
     Active Substance: MYCOPHENOLATE MOFETIL
     Indication: Renal transplant
     Route: 065
  2. TACROLIMUS [Interacting]
     Active Substance: TACROLIMUS
     Indication: Renal transplant
     Route: 065
  3. METHYLPREDNISOLONE [Interacting]
     Active Substance: METHYLPREDNISOLONE
     Indication: Renal transplant
     Route: 065

REACTIONS (4)
  - Cryptococcosis [Unknown]
  - Labelled drug-drug interaction issue [Unknown]
  - Cryptococcal cutaneous infection [Unknown]
  - Off label use [Unknown]
